FAERS Safety Report 13209363 (Version 2)
Quarter: 2017Q1

REPORT INFORMATION
  Report Type: Spontaneous
  Country: US (occurrence: US)
  Receive Date: 20170209
  Receipt Date: 20170330
  Transmission Date: 20170428
  Serious: Yes (Other)
  Sender: FDA-Public Use
  Company Number: US-ELI_LILLY_AND_COMPANY-US201702001388

PATIENT
  Sex: Female

DRUGS (5)
  1. HUMULIN R [Suspect]
     Active Substance: INSULIN HUMAN
     Indication: TYPE 2 DIABETES MELLITUS
     Dosage: 22 U, EACH MORNING
     Route: 065
     Dates: start: 2012
  2. HUMULIN R [Suspect]
     Active Substance: INSULIN HUMAN
     Dosage: 26 U, EACH EVENING
     Route: 065
     Dates: start: 2012
  3. STELARA [Suspect]
     Active Substance: USTEKINUMAB
     Indication: PRODUCT USED FOR UNKNOWN INDICATION
     Dosage: UNK, UNKNOWN
     Route: 065
  4. HUMULIN R [Suspect]
     Active Substance: INSULIN HUMAN
     Dosage: UNK UNK, PRN
     Route: 065
     Dates: start: 2012
  5. INVOKANA [Concomitant]
     Active Substance: CANAGLIFLOZIN

REACTIONS (1)
  - Vasculitis [Unknown]
